FAERS Safety Report 14604280 (Version 1)
Quarter: 2018Q1

REPORT INFORMATION
  Report Type: Spontaneous
  Country: US (occurrence: US)
  Receive Date: 20180306
  Receipt Date: 20180306
  Transmission Date: 20180509
  Serious: No
  Sender: FDA-Public Use
  Company Number: None

PATIENT
  Age: 73 Year
  Sex: Male

DRUGS (1)
  1. STIVARGA [Suspect]
     Active Substance: REGORAFENIB
     Indication: COLON CANCER
     Dosage: 21DAYS OF A 28 DAY CYCLE
     Route: 048
     Dates: start: 20171130, end: 20180112

REACTIONS (4)
  - Hypoaesthesia [None]
  - Paraesthesia [None]
  - Blood pressure increased [None]
  - Rash [None]

NARRATIVE: CASE EVENT DATE: 20171208
